FAERS Safety Report 5532974-X (Version None)
Quarter: 2007Q4

REPORT INFORMATION
  Report Type: 
  Country: None (occurrence: None)
  Receive Date: 20071129
  Receipt Date: 20071129
  Transmission Date: 20080405
  Serious: Yes (Death)
  Sender: FDA-Public Use
  Company Number: None

PATIENT
  Sex: Female
  Weight: 68.0396 kg

DRUGS (2)
  1. KLONOPIN [Suspect]
     Indication: BALANCE DISORDER
     Dosage: 2 3 TIMES PER DAY PO
     Route: 048
     Dates: start: 20030501, end: 20070912
  2. KLONOPIN [Suspect]
     Indication: TREMOR
     Dosage: 2 3 TIMES PER DAY PO
     Route: 048
     Dates: start: 20030501, end: 20070912

REACTIONS (8)
  - CARDIOMEGALY [None]
  - CLUMSINESS [None]
  - EXCESSIVE EYE BLINKING [None]
  - GAIT DISTURBANCE [None]
  - INCORRECT DOSE ADMINISTERED [None]
  - INCORRECT DRUG ADMINISTRATION DURATION [None]
  - LOSS OF CONSCIOUSNESS [None]
  - TREATMENT NONCOMPLIANCE [None]
